FAERS Safety Report 8036224-4 (Version None)
Quarter: 2012Q1

REPORT INFORMATION
  Report Type: 
  Country: None (occurrence: None)
  Receive Date: 20120111
  Receipt Date: 20120105
  Transmission Date: 20120608
  Serious: Yes (Other)
  Sender: FDA-Public Use
  Company Number: PHHY2012BR001461

PATIENT
  Sex: Female

DRUGS (3)
  1. DIOVAN HCT [Suspect]
     Indication: HYPERTENSION
     Dosage: 1 DF DAILY
  2. CLONAZEPAM [Concomitant]
     Indication: ANXIETY
     Dosage: UNK UKN, PRN
  3. VERAPAMIL [Concomitant]
     Indication: ARRHYTHMIA
     Dosage: 2 DF DAILY

REACTIONS (1)
  - CATARACT [None]
